FAERS Safety Report 8414560-7 (Version None)
Quarter: 2012Q2

REPORT INFORMATION
  Report Type: 
  Country: None (occurrence: None)
  Receive Date: 20120605
  Receipt Date: 20120524
  Transmission Date: 20120825
  Serious: Yes (Other)
  Sender: FDA-Public Use
  Company Number: US-BAXTER-2012BAX006758

PATIENT
  Sex: Male

DRUGS (3)
  1. GLASSIA [Suspect]
  2. GAMMAGARD LIQUID [Suspect]
     Route: 042
  3. GAMMAGARD LIQUID [Suspect]
     Route: 042
     Dates: start: 20120521, end: 20120521

REACTIONS (6)
  - PYREXIA [None]
  - CHILLS [None]
  - SINUSITIS [None]
  - TREMOR [None]
  - BLOOD PRESSURE INCREASED [None]
  - MALAISE [None]
